FAERS Safety Report 15202886 (Version 1)
Quarter: 2018Q3

REPORT INFORMATION
  Report Type: Spontaneous
  Country: US (occurrence: US)
  Receive Date: 20180726
  Receipt Date: 20180726
  Transmission Date: 20181010
  Serious: No
  Sender: FDA-Public Use
  Company Number: US-TEVA-2018-US-933263

PATIENT
  Sex: Female

DRUGS (1)
  1. VALSARTAN. [Suspect]
     Active Substance: VALSARTAN
     Route: 065
     Dates: start: 2015

REACTIONS (8)
  - Skin lesion [Unknown]
  - Viral upper respiratory tract infection [Unknown]
  - Myalgia [Unknown]
  - Hepatic enzyme increased [Recovering/Resolving]
  - Fibrous histiocytoma [Unknown]
  - Mucosal ulceration [Unknown]
  - Fatigue [Unknown]
  - Transaminases increased [Recovering/Resolving]

NARRATIVE: CASE EVENT DATE: 2016
